FAERS Safety Report 7817632-0 (Version None)
Quarter: 2011Q4

REPORT INFORMATION
  Report Type: 
  Country: None (occurrence: None)
  Receive Date: 20111017
  Receipt Date: 20111011
  Transmission Date: 20120403
  Serious: Yes (Other)
  Sender: FDA-Public Use
  Company Number: CA-ALLERGAN-1111874US

PATIENT
  Age: 68 Year
  Sex: Male

DRUGS (2)
  1. PREDNISOLONE ACETATE [Suspect]
     Indication: EYE INFECTION
  2. PREDNISOLONE ACETATE [Suspect]
     Indication: EYE SWELLING
     Dosage: UNK
     Dates: start: 20080101

REACTIONS (3)
  - DRUG INEFFECTIVE [None]
  - VISUAL ACUITY REDUCED [None]
  - EYE IRRITATION [None]
